FAERS Safety Report 19622233 (Version 1)
Quarter: 2021Q3

REPORT INFORMATION
  Report Type: Spontaneous
  Country: GB (occurrence: GB)
  Receive Date: 20210728
  Receipt Date: 20210728
  Transmission Date: 20211014
  Serious: Yes (Disabling, Other)
  Sender: FDA-Public Use
  Company Number: GB-EMCURE PHARMACEUTICALS LTD-2021-EPL-002445

PATIENT
  Age: 33 Year
  Sex: Female
  Weight: 78 kg

DRUGS (2)
  1. LABETALOL [Suspect]
     Active Substance: LABETALOL\LABETALOL HYDROCHLORIDE
     Indication: HYPERTENSION
     Dosage: 100 MILLIGRAM, BID
     Route: 048
     Dates: start: 20210512
  2. ASPIRIN. [Concomitant]
     Active Substance: ASPIRIN
     Indication: ILL-DEFINED DISORDER

REACTIONS (4)
  - Raynaud^s phenomenon [Unknown]
  - Muscle spasms [Unknown]
  - Pain [Unknown]
  - Exposure during pregnancy [Unknown]

NARRATIVE: CASE EVENT DATE: 20210522
